FAERS Safety Report 26026887 (Version 1)
Quarter: 2025Q4

REPORT INFORMATION
  Report Type: Spontaneous
  Country: US (occurrence: None)
  Receive Date: 20251111
  Receipt Date: 20251111
  Transmission Date: 20260118
  Serious: Yes (Other)
  Sender: FDA-CTU
  Company Number: None

PATIENT
  Sex: Male

DRUGS (11)
  1. VYNDAMAX [Suspect]
     Active Substance: TAFAMIDIS
     Indication: Amyloidosis
     Dosage: ??TAKE 1 CAPSULE (61 MG TOTAL) BY MOUTH DAILY?
     Route: 048
     Dates: start: 20250123
  2. ALBUTEROL  NEB 1.25MG/3 [Concomitant]
  3. ATORVASTATIN [Concomitant]
     Active Substance: ATORVASTATIN
  4. D3 TAB 2000UNIT [Concomitant]
  5. DEXCOM G6  MIS TRANSMIT [Concomitant]
  6. FAMOTIDINE [Concomitant]
     Active Substance: FAMOTIDINE
  7. FLURANDRENOL LOT 0.05% [Concomitant]
  8. GABAPENTIN [Concomitant]
     Active Substance: GABAPENTIN
  9. GLIMEPIRIDE TAB 2MG [Concomitant]
  10. GLUCOSAMINE TAB 750MG [Concomitant]
  11. HYDROCORTISO LOT 2% [Concomitant]

REACTIONS (2)
  - Surgery [None]
  - Intentional dose omission [None]
